FAERS Safety Report 6651430-9 (Version None)
Quarter: 2010Q1

REPORT INFORMATION
  Report Type: 
  Country: None (occurrence: None)
  Receive Date: 20100325
  Receipt Date: 20100312
  Transmission Date: 20100710
  Serious: Yes (Hospitalization, Disabling, Other)
  Sender: FDA-Public Use
  Company Number: US-ELI_LILLY_AND_COMPANY-US200911004810

PATIENT
  Sex: Male
  Weight: 136.5 kg

DRUGS (1)
  1. ZYPREXA [Suspect]
     Dosage: 1 UNK, UNK
     Dates: start: 20020101

REACTIONS (8)
  - BLOOD CHOLESTEROL INCREASED [None]
  - CHOLELITHIASIS [None]
  - DIABETES MELLITUS [None]
  - GALLBLADDER OPERATION [None]
  - METABOLIC DISORDER [None]
  - OBESITY [None]
  - STRESS [None]
  - WEIGHT INCREASED [None]
